FAERS Safety Report 6666536-8 (Version None)
Quarter: 2010Q2

REPORT INFORMATION
  Report Type: 
  Country: None (occurrence: None)
  Receive Date: 20100402
  Receipt Date: 20100329
  Transmission Date: 20101027
  Serious: Yes (Disabling)
  Sender: FDA-Public Use
  Company Number: US-MERCK-1003USA01342

PATIENT
  Age: 59 Year
  Sex: Female

DRUGS (4)
  1. FOSAMAX [Suspect]
     Indication: IMMUNISATION
     Route: 048
     Dates: start: 20030101
  2. ALLEGRA [Concomitant]
     Route: 065
  3. BUMEX [Concomitant]
     Route: 065
  4. FOSAMAX [Suspect]
     Route: 065

REACTIONS (4)
  - FALL [None]
  - FRACTURE [None]
  - OFF LABEL USE [None]
  - WRIST FRACTURE [None]
